FAERS Safety Report 8181261-2 (Version None)
Quarter: 2012Q1

REPORT INFORMATION
  Report Type: 
  Country: None (occurrence: None)
  Receive Date: 20120302
  Receipt Date: 20120221
  Transmission Date: 20120608
  Serious: Yes (Hospitalization, Other)
  Sender: FDA-Public Use
  Company Number: US-BAYER-2011-061293

PATIENT
  Age: 18 Year
  Sex: Female
  Weight: 110 kg

DRUGS (10)
  1. PRILOSEC [Concomitant]
     Indication: ABDOMINAL PAIN UPPER
     Dosage: 40 MG, QD
     Route: 048
     Dates: start: 20080715
  2. TRAZODONE HCL [Concomitant]
     Dosage: 100 MG, HS
     Route: 048
  3. LUNESTA [Concomitant]
     Indication: INSOMNIA
     Route: 048
  4. YAZ [Suspect]
     Indication: ORAL CONTRACEPTION
     Dosage: UNK
     Route: 048
     Dates: start: 20080406, end: 20080512
  5. YASMIN [Suspect]
     Indication: ORAL CONTRACEPTION
     Dosage: UNK
     Route: 048
     Dates: start: 20061101, end: 20080715
  6. ZITHROMAX [Concomitant]
     Indication: CHLAMYDIAL INFECTION
     Dosage: 500 MG, UNK
     Route: 048
     Dates: start: 20080313
  7. BUPROPION HCL [Concomitant]
     Dosage: 300 MG, QD
     Route: 048
  8. CITALOPRAM HYDROBROMIDE [Concomitant]
     Indication: DEPRESSION
     Dosage: 20 MG, QD
     Route: 048
     Dates: start: 20070101, end: 20080630
  9. KLONOPIN [Concomitant]
     Indication: ANXIETY
     Dosage: 0.5 MG, BID
     Route: 048
     Dates: start: 20070101, end: 20110101
  10. IBUPROFEN TABLETS [Concomitant]
     Indication: BACK PAIN
     Dosage: 800 MG, PRN
     Route: 048

REACTIONS (11)
  - PAIN [None]
  - ABDOMINAL PAIN [None]
  - CHOLELITHIASIS [None]
  - ANXIETY [None]
  - INCISION SITE INFECTION [None]
  - GASTROINTESTINAL DISORDER [None]
  - EMOTIONAL DISTRESS [None]
  - GENERAL PHYSICAL HEALTH DETERIORATION [None]
  - BACK PAIN [None]
  - PREGNANCY [None]
  - CHOLECYSTITIS CHRONIC [None]
